FAERS Safety Report 8012898-9 (Version None)
Quarter: 2011Q4

REPORT INFORMATION
  Report Type: 
  Country: None (occurrence: None)
  Receive Date: 20111223
  Receipt Date: 20111223
  Transmission Date: 20120403
  Serious: Yes (Disabling)
  Sender: FDA-Public Use
  Company Number: 1022556-2011-00070

PATIENT
  Age: 36 Year
  Sex: Female

DRUGS (1)
  1. ICY HOT-GENERIC [Suspect]
     Indication: MYALGIA
     Route: 061

REACTIONS (3)
  - THERAPEUTIC PRODUCT INEFFECTIVE [None]
  - PAIN [None]
  - BLISTER [None]
